FAERS Safety Report 20208727 (Version 1)
Quarter: 2021Q4

REPORT INFORMATION
  Report Type: Spontaneous
  Country: CN (occurrence: CN)
  Receive Date: 20211220
  Receipt Date: 20211220
  Transmission Date: 20220303
  Serious: Yes (Hospitalization)
  Sender: FDA-Public Use
  Company Number: CN-Merck Healthcare KGaA-9286754

PATIENT
  Age: 57 Year
  Sex: Male
  Weight: 59 kg

DRUGS (7)
  1. ERBITUX [Suspect]
     Active Substance: CETUXIMAB
     Indication: Rectal cancer
     Dosage: 700 MG, DAILY
     Route: 041
     Dates: start: 20211122, end: 20211123
  2. OXALIPLATIN [Suspect]
     Active Substance: OXALIPLATIN
     Indication: Rectal cancer
     Dosage: 100 MG, DAILY
     Route: 041
     Dates: start: 20211022
  3. OXALIPLATIN [Suspect]
     Active Substance: OXALIPLATIN
     Dosage: 200 MG, UNK
     Route: 041
     Dates: start: 20211109
  4. OXALIPLATIN [Suspect]
     Active Substance: OXALIPLATIN
     Dosage: 100 MG, DAILY
     Route: 041
     Dates: start: 20211122, end: 20211123
  5. FLUOROURACIL [Suspect]
     Active Substance: FLUOROURACIL
     Indication: Rectal cancer
     Dosage: 100 ML, DAILY
     Route: 041
     Dates: start: 20211022
  6. FLUOROURACIL [Suspect]
     Active Substance: FLUOROURACIL
     Dosage: 100 ML, DAILY
     Route: 041
     Dates: start: 20211122, end: 20211123
  7. LEUCOVORIN CALCIUM [Concomitant]
     Active Substance: LEUCOVORIN CALCIUM
     Indication: Rectal cancer
     Dosage: .6 G, UNK
     Dates: start: 20211022

REACTIONS (1)
  - Palmar-plantar erythrodysaesthesia syndrome [Unknown]

NARRATIVE: CASE EVENT DATE: 20211129
